FAERS Safety Report 5296307-9 (Version None)
Quarter: 2007Q2

REPORT INFORMATION
  Report Type: 
  Country: None (occurrence: None)
  Receive Date: 20070413
  Receipt Date: 20070405
  Transmission Date: 20071010
  Serious: Yes (Hospitalization, Other)
  Sender: FDA-Public Use
  Company Number: US-ABBOTT-07P-163-0364286-00

PATIENT
  Sex: Female
  Weight: 107.3 kg

DRUGS (5)
  1. HUMIRA [Suspect]
     Indication: RHEUMATOID ARTHRITIS
     Route: 058
     Dates: start: 20040101, end: 20050301
  2. HUMIRA [Suspect]
     Indication: COLITIS ULCERATIVE
     Route: 058
     Dates: start: 20050801, end: 20051001
  3. HUMIRA [Suspect]
     Route: 058
     Dates: start: 20060601, end: 20070101
  4. HUMIRA [Suspect]
     Route: 058
     Dates: start: 20070405
  5. CELECOXIB [Concomitant]
     Indication: RHEUMATOID ARTHRITIS
     Route: 048

REACTIONS (4)
  - ARTHRALGIA [None]
  - BREAST CANCER [None]
  - CARTILAGE INJURY [None]
  - OSTEOARTHRITIS [None]
